FAERS Safety Report 14557505 (Version 2)
Quarter: 2018Q1

REPORT INFORMATION
  Report Type: Spontaneous
  Country: FR (occurrence: FR)
  Receive Date: 20180221
  Receipt Date: 20180328
  Transmission Date: 20180509
  Serious: Yes (Other)
  Sender: FDA-Public Use
  Company Number: FR-CONCORDIA PHARMACEUTICALS INC.-E2B_00009982

PATIENT
  Age: 84 Year
  Sex: Male

DRUGS (11)
  1. CYANOCOBALAMINE [Concomitant]
     Active Substance: CYANOCOBALAMIN
  2. FOLINIC ACID [Concomitant]
     Active Substance: LEUCOVORIN
  3. ALIMTA [Suspect]
     Active Substance: PEMETREXED DISODIUM
     Indication: THYMOMA MALIGNANT
     Route: 041
     Dates: start: 201709
  4. SOMATULINE [Suspect]
     Active Substance: LANREOTIDE ACETATE
     Indication: THYMOMA MALIGNANT
     Route: 058
     Dates: end: 2017
  5. AERIUS [Concomitant]
     Active Substance: DESLORATADINE
  6. G-CSF HUMAIN RECOMBINANT ((BACTERIE/ESCHERICHIA COLI)) [Concomitant]
  7. ACIDE FOLIQUE [Concomitant]
     Active Substance: FOLIC ACID
  8. EMEND [Suspect]
     Active Substance: APREPITANT
     Indication: THYMOMA MALIGNANT
     Route: 048
     Dates: start: 201709
  9. PREDNISOLONE. [Suspect]
     Active Substance: PREDNISOLONE
     Indication: THYMOMA MALIGNANT
     Route: 048
     Dates: start: 201709
  10. SOMATULINE [Suspect]
     Active Substance: LANREOTIDE ACETATE
     Indication: OFF LABEL USE
  11. G-CSF HUMAN RECOMBINANT [Concomitant]

REACTIONS (4)
  - Retinopathy [Not Recovered/Not Resolved]
  - Off label use [Unknown]
  - Keratitis [Not Recovered/Not Resolved]
  - Visual acuity reduced [Not Recovered/Not Resolved]

NARRATIVE: CASE EVENT DATE: 201801
